FAERS Safety Report 19815835 (Version 3)
Quarter: 2021Q3

REPORT INFORMATION
  Report Type: Report from Study
  Country: LB (occurrence: LB)
  Receive Date: 20210910
  Receipt Date: 20210930
  Transmission Date: 20211014
  Serious: Yes (Hospitalization)
  Sender: FDA-Public Use
  Company Number: NVSC2021LB184934

PATIENT
  Age: 53 Year
  Sex: Female
  Weight: 105 kg

DRUGS (2)
  1. EUTHYROX [Concomitant]
     Active Substance: LEVOTHYROXINE SODIUM
     Indication: PRODUCT USED FOR UNKNOWN INDICATION
     Dosage: UNK
     Route: 065
  2. AFINITOR [Suspect]
     Active Substance: EVEROLIMUS
     Indication: BREAST CANCER
     Dosage: 1 DF, QD
     Route: 048
     Dates: start: 20210619

REACTIONS (13)
  - Pyrexia [Recovered/Resolved]
  - Urinary tract infection [Recovered/Resolved]
  - Diarrhoea [Recovered/Resolved]
  - Insomnia [Not Recovered/Not Resolved]
  - Gastrointestinal infection [Recovered/Resolved]
  - Chills [Recovered/Resolved]
  - Dyspnoea [Recovered/Resolved]
  - Weight decreased [Recovered/Resolved]
  - Nausea [Recovered/Resolved]
  - Rhinorrhoea [Recovered/Resolved]
  - Vomiting [Recovered/Resolved]
  - Fatigue [Not Recovered/Not Resolved]
  - COVID-19 [Recovered/Resolved]

NARRATIVE: CASE EVENT DATE: 202107
